FAERS Safety Report 25115604 (Version 1)
Quarter: 2025Q1

REPORT INFORMATION
  Report Type: Report from Study
  Country: US (occurrence: US)
  Receive Date: 20250325
  Receipt Date: 20250325
  Transmission Date: 20250409
  Serious: Yes (Other)
  Sender: ABBVIE
  Company Number: US-ABBVIE-6187842

PATIENT
  Sex: Female

DRUGS (1)
  1. SKYRIZI [Suspect]
     Active Substance: RISANKIZUMAB-RZAA
     Indication: Crohn^s disease
     Route: 058
     Dates: start: 20240419, end: 20250222

REACTIONS (3)
  - Adrenal mass [Not Recovered/Not Resolved]
  - Renal cancer [Not Recovered/Not Resolved]
  - Pancreatic mass [Not Recovered/Not Resolved]
